FAERS Safety Report 25156133 (Version 4)
Quarter: 2025Q2

REPORT INFORMATION
  Report Type: Spontaneous
  Country: DE (occurrence: DE)
  Receive Date: 20250403
  Receipt Date: 20250430
  Transmission Date: 20250716
  Serious: Yes (Hospitalization, Other)
  Sender: FERRING
  Company Number: None

PATIENT

DRUGS (13)
  1. GONADOTROPHIN, CHORIONIC [Suspect]
     Active Substance: GONADOTROPHIN, CHORIONIC
     Indication: Assisted reproductive technology
     Dosage: 375 INTERNATIONAL UNIT, DAILY
     Route: 065
     Dates: start: 20250127, end: 20250127
  2. GONADOTROPHIN, CHORIONIC [Suspect]
     Active Substance: GONADOTROPHIN, CHORIONIC
     Dosage: 375 INTERNATIONAL UNIT, DAILY
     Route: 065
     Dates: start: 20250124, end: 20250124
  3. GONAL-F [Suspect]
     Active Substance: FOLLITROPIN
     Indication: Assisted reproductive technology
     Dosage: 150 INTERNATIONAL UNIT, ONCE/SINGLE
     Route: 065
     Dates: start: 20250120, end: 20250120
  4. GONAL-F [Suspect]
     Active Substance: FOLLITROPIN
     Dosage: 200 INTERNATIONAL UNIT, DAILY
     Route: 065
     Dates: start: 20250114, end: 20250119
  5. GONAL-F [Suspect]
     Active Substance: FOLLITROPIN
     Dosage: 150 INTERNATIONAL UNIT, DAILY
     Route: 065
     Dates: start: 20250109, end: 20250113
  6. TRIPTORELIN ACETATE [Suspect]
     Active Substance: TRIPTORELIN ACETATE
     Indication: Assisted reproductive technology
     Dosage: 0.2 MG, ONCE/SINGLE
     Route: 065
     Dates: start: 20250120, end: 20250120
  7. PROGESTERONE [Suspect]
     Active Substance: PROGESTERONE
     Indication: Assisted reproductive technology
     Dosage: 400 MG, 3 TIMES DAILY
     Route: 067
     Dates: start: 20250122, end: 20250209
  8. DUPHASTON [Suspect]
     Active Substance: DYDROGESTERONE
     Indication: Assisted reproductive technology
     Dosage: 30 MG, DAILY
     Route: 065
     Dates: start: 20250122, end: 20250209
  9. ESTRADIOL [Suspect]
     Active Substance: ESTRADIOL
     Indication: Assisted reproductive technology
     Dosage: 16 MG, DAILY
     Route: 065
     Dates: start: 20250122, end: 20250123
  10. ESTRADIOL [Suspect]
     Active Substance: ESTRADIOL
     Indication: Assisted reproductive technology
     Dosage: 4 MG, 2 TIMES DAILY
     Route: 048
     Dates: start: 20250124, end: 20250209
  11. ESTRADIOL [Suspect]
     Active Substance: ESTRADIOL
     Dosage: 6 MG, 2 TIMES DAILY
     Route: 067
     Dates: start: 20250124, end: 20250209
  12. ASPIRIN [Suspect]
     Active Substance: ASPIRIN
     Indication: Assisted reproductive technology
     Dosage: 150 MG, DAILY
     Route: 048
     Dates: start: 20250124, end: 20250209
  13. GANIRELIX ACETATE [Suspect]
     Active Substance: GANIRELIX ACETATE
     Indication: Assisted reproductive technology
     Dosage: 0.25 MG, DAILY
     Route: 065
     Dates: start: 20250114, end: 20250119

REACTIONS (4)
  - Ovarian hyperstimulation syndrome [Recovered/Resolved]
  - Thrombophlebitis [Recovered/Resolved]
  - Underdose [Recovered/Resolved]
  - Product use issue [Recovered/Resolved]

NARRATIVE: CASE EVENT DATE: 20250122
